FAERS Safety Report 6855014-9 (Version None)
Quarter: 2010Q3

REPORT INFORMATION
  Report Type: 
  Country: None (occurrence: None)
  Receive Date: 20100717
  Receipt Date: 20080728
  Transmission Date: 20110219
  Serious: Yes (Other)
  Sender: FDA-Public Use
  Company Number: US-PFIZER INC-2007101512

PATIENT
  Sex: Female
  Weight: 55.8 kg

DRUGS (2)
  1. CHANTIX [Suspect]
     Dates: start: 20070101, end: 20070101
  2. PROZAC [Concomitant]
     Indication: DEPRESSION

REACTIONS (12)
  - ABNORMAL DREAMS [None]
  - AMNESIA [None]
  - DEPERSONALISATION [None]
  - DISTURBANCE IN ATTENTION [None]
  - DIZZINESS [None]
  - DREAMY STATE [None]
  - INSOMNIA [None]
  - IRRITABILITY [None]
  - MENTAL IMPAIRMENT [None]
  - NIGHTMARE [None]
  - SOCIAL AVOIDANT BEHAVIOUR [None]
  - THINKING ABNORMAL [None]
